FAERS Safety Report 18916602 (Version 1)
Quarter: 2021Q1

REPORT INFORMATION
  Report Type: Spontaneous
  Country: US (occurrence: US)
  Receive Date: 20210219
  Receipt Date: 20210219
  Transmission Date: 20210420
  Serious: No
  Sender: FDA-Public Use
  Company Number: US-TAKEDA-2021TUS010822

PATIENT
  Sex: Female
  Weight: 53.52 kg

DRUGS (10)
  1. DIPHENHYDRAMINE. [Concomitant]
     Active Substance: DIPHENHYDRAMINE
  2. NEURONTIN [Concomitant]
     Active Substance: GABAPENTIN
  3. SODIUM CHLORIDE. [Concomitant]
     Active Substance: SODIUM CHLORIDE
  4. NORTRIPTYLINE [Concomitant]
     Active Substance: NORTRIPTYLINE
  5. GAMMAGARD LIQUID [Suspect]
     Active Substance: HUMAN IMMUNOGLOBULIN G
     Indication: CONGENITAL HYPOGAMMAGLOBULINAEMIA
     Dosage: 25 GRAM, Q4WEEKS
     Route: 042
     Dates: start: 20170414
  6. LIDOCAINE. [Concomitant]
     Active Substance: LIDOCAINE
  7. EPINEPHRINE. [Concomitant]
     Active Substance: EPINEPHRINE
  8. ACETAMINOPHEN. [Concomitant]
     Active Substance: ACETAMINOPHEN
  9. SINGULAIR [Concomitant]
     Active Substance: MONTELUKAST SODIUM
  10. HEPARIN [Concomitant]
     Active Substance: HEPARIN SODIUM

REACTIONS (2)
  - Exposure during pregnancy [Unknown]
  - No adverse event [Unknown]
